FAERS Safety Report 17251521 (Version 1)
Quarter: 2019Q4

REPORT INFORMATION
  Report Type: Spontaneous
  Country: US (occurrence: US)
  Receive Date: 20191213
  Receipt Date: 20191213
  Transmission Date: 20200122
  Serious: Yes (Hospitalization)
  Sender: FDA-Public Use
  Company Number: None

PATIENT
  Sex: Male
  Weight: 76.7 kg

DRUGS (4)
  1. CYCLOPHOSPHAMIDE. [Suspect]
     Active Substance: CYCLOPHOSPHAMIDE
     Dates: end: 20191114
  2. CYTARABINE. [Suspect]
     Active Substance: CYTARABINE
     Dates: end: 20191124
  3. MERCAPTOPURINE. [Suspect]
     Active Substance: MERCAPTOPURINE
     Dates: end: 20191127
  4. METHOTREXATE. [Suspect]
     Active Substance: METHOTREXATE
     Dates: end: 20191206

REACTIONS (4)
  - Anal abscess [None]
  - Proctitis [None]
  - Drug eruption [None]
  - Haemorrhoids [None]

NARRATIVE: CASE EVENT DATE: 20191130
